FAERS Safety Report 9862577 (Version 1)
Quarter: 2014Q1

REPORT INFORMATION
  Report Type: Spontaneous
  Country: US (occurrence: US)
  Receive Date: 20140203
  Receipt Date: 20140203
  Transmission Date: 20141002
  Serious: Yes (Death, Other)
  Sender: FDA-Public Use
  Company Number: CHPA2014US001657

PATIENT
  Age: 59 Year
  Sex: Female

DRUGS (3)
  1. ACETAMINOPHEN (PARACETAMOL) [Suspect]
     Route: 048
  2. OPIOIDS [Suspect]
     Route: 048
  3. BENZODIAZEPINES [Suspect]
     Route: 048

REACTIONS (2)
  - Completed suicide [Fatal]
  - Cardio-respiratory arrest [Unknown]
